FAERS Safety Report 6780125-6 (Version None)
Quarter: 2010Q2

REPORT INFORMATION
  Report Type: 
  Country: None (occurrence: None)
  Receive Date: 20100618
  Receipt Date: 20100609
  Transmission Date: 20101027
  Serious: Yes (Hospitalization)
  Sender: FDA-Public Use
  Company Number: GB-ABBOTT-10P-167-0650644-00

PATIENT
  Age: 45 Year
  Sex: Male

DRUGS (1)
  1. EPILIM TABLETS [Suspect]
     Indication: DRUG USE FOR UNKNOWN INDICATION

REACTIONS (7)
  - AMNESIA [None]
  - ASTHENIA [None]
  - DISTURBANCE IN ATTENTION [None]
  - DYSTONIA [None]
  - EPILEPSY [None]
  - LOSS OF CONSCIOUSNESS [None]
  - MYOCLONUS [None]
